FAERS Safety Report 9730327 (Version 1)
Quarter: 2013Q4

REPORT INFORMATION
  Report Type: Spontaneous
  Country: US (occurrence: US)
  Receive Date: 20131202
  Receipt Date: 20131202
  Transmission Date: 20140711
  Serious: No
  Sender: FDA-Public Use
  Company Number: US-PFIZER INC-2013341541

PATIENT
  Age: 65 Year
  Sex: Male
  Weight: 108.84 kg

DRUGS (13)
  1. GABAPENTIN [Suspect]
     Indication: DIABETIC NEUROPATHY
     Dosage: 300 MG, 2X/DAY
     Route: 048
     Dates: start: 201207, end: 20131126
  2. ARICEPT [Concomitant]
     Dosage: 10 MG, 1X/DAY
  3. ATIVAN [Concomitant]
     Dosage: 25 MG, 1X/DAY (AT BED TIME)
  4. WELLBUTRIN [Concomitant]
     Dosage: 150 MG, UNK
  5. STALEVO [Concomitant]
     Dosage: 37.5MG/150MG/200MG, 3X/DAY
  6. REQUIPP [Concomitant]
     Dosage: 1 MG, 3X/DAY
  7. TRAZODONE [Concomitant]
     Dosage: 50 MG, 1X/DAY (AT BED TIME)
  8. TEMAZEPAM [Concomitant]
     Dosage: 15 MG, 1X/DAY (AT BED TIME)
  9. ARTANE [Concomitant]
     Dosage: 2 MG, 2X/DAY
  10. ZOCOR [Concomitant]
     Dosage: 40 MG, 1X/DAY
  11. CELEXA [Concomitant]
     Dosage: 10 MG, 2X/DAY
  12. METFORMIN [Concomitant]
     Dosage: 500 MG, 3X/DAY
  13. OXYBUTYNIN [Concomitant]
     Dosage: 5 MG, 1X/DAY

REACTIONS (1)
  - Drug effect decreased [Unknown]
